FAERS Safety Report 5906940-6 (Version None)
Quarter: 2008Q4

REPORT INFORMATION
  Report Type: 
  Country: None (occurrence: None)
  Receive Date: 20081003
  Receipt Date: 20080922
  Transmission Date: 20090506
  Serious: Yes (Other)
  Sender: FDA-Public Use
  Company Number: CR-JNJFOC-20080905871

PATIENT
  Sex: Male

DRUGS (1)
  1. REMICADE [Suspect]
     Indication: UVEITIS
     Dosage: 3 DOSES ADMINISTERED ON UNKNOWN DATES
     Route: 042

REACTIONS (1)
  - NERVOUS SYSTEM DISORDER [None]
